FAERS Safety Report 7158560-6 (Version None)
Quarter: 2010Q4

REPORT INFORMATION
  Report Type: 
  Country: None (occurrence: None)
  Receive Date: 20101214
  Receipt Date: 20100713
  Transmission Date: 20110411
  Serious: No
  Sender: FDA-Public Use
  Company Number: US-ASTRAZENECA-2010SE23637

PATIENT
  Age: 82 Year
  Sex: Female
  Weight: 51.7 kg

DRUGS (2)
  1. CRESTOR [Suspect]
     Route: 048
     Dates: start: 20100304
  2. CRESTOR [Suspect]
     Route: 048

REACTIONS (5)
  - ASPARTATE AMINOTRANSFERASE INCREASED [None]
  - BLOOD PRESSURE INCREASED [None]
  - FEELING HOT [None]
  - FLUSHING [None]
  - INSOMNIA [None]
